FAERS Safety Report 20843661 (Version 1)
Quarter: 2022Q2

REPORT INFORMATION
  Report Type: Spontaneous
  Country: US (occurrence: US)
  Receive Date: 20220518
  Receipt Date: 20220518
  Transmission Date: 20220721
  Serious: No
  Sender: FDA-Public Use
  Company Number: US-UNITED THERAPEUTICS-UNT-2022-010658

PATIENT
  Age: 76 Year
  Sex: Female
  Weight: 72.562 kg

DRUGS (3)
  1. TYVASO [Suspect]
     Active Substance: TREPROSTINIL
     Indication: Pulmonary arterial hypertension
     Dosage: UNK
     Dates: start: 20211029
  2. TYVASO [Suspect]
     Active Substance: TREPROSTINIL
     Dosage: 18-72 ?G, QID
     Dates: end: 20220509
  3. OFEV [Concomitant]
     Active Substance: NINTEDANIB
     Indication: Product used for unknown indication
     Dosage: UNK
     Route: 065

REACTIONS (6)
  - Nasopharyngitis [Unknown]
  - Dyspnoea [Not Recovered/Not Resolved]
  - Diarrhoea [Unknown]
  - Dizziness [Unknown]
  - Device electrical finding [Unknown]
  - Device electrical finding [Unknown]

NARRATIVE: CASE EVENT DATE: 20220510
